FAERS Safety Report 24011632 (Version 1)
Quarter: 2024Q2

REPORT INFORMATION
  Report Type: Spontaneous
  Country: US (occurrence: None)
  Receive Date: 20240625
  Receipt Date: 20240625
  Transmission Date: 20240715
  Serious: Yes (Other)
  Sender: FDA-Public Use
  Company Number: None

PATIENT
  Age: 58 Year
  Sex: Female

DRUGS (1)
  1. FERRLECIT [Suspect]
     Active Substance: SODIUM FERRIC GLUCONATE COMPLEX
     Indication: Iron deficiency anaemia
     Dosage: FREQUENCY : ONCE;?
     Route: 042

REACTIONS (7)
  - Anaphylactic reaction [None]
  - Anaphylactoid reaction [None]
  - Hyperhidrosis [None]
  - Hypotension [None]
  - Nausea [None]
  - Vomiting [None]
  - Diarrhoea [None]

NARRATIVE: CASE EVENT DATE: 20240621
